FAERS Safety Report 7951654-4 (Version None)
Quarter: 2011Q4

REPORT INFORMATION
  Report Type: 
  Country: None (occurrence: None)
  Receive Date: 20111201
  Receipt Date: 20111129
  Transmission Date: 20120403
  Serious: No
  Sender: FDA-Public Use
  Company Number: US-B.I. PHARMACEUTICALS,INC./RIDGEFIELD-2011-BP-27095BP

PATIENT

DRUGS (1)
  1. SPIRIVA [Suspect]
     Dates: start: 20111101

REACTIONS (1)
  - DYSGEUSIA [None]
